FAERS Safety Report 9663013 (Version 1)
Quarter: 2013Q4

REPORT INFORMATION
  Report Type: Spontaneous
  Country: US (occurrence: US)
  Receive Date: 20131031
  Receipt Date: 20131031
  Transmission Date: 20140711
  Serious: No
  Sender: FDA-Public Use
  Company Number: US-PURDUE-USA-2011-0076024

PATIENT
  Sex: Male

DRUGS (2)
  1. OXYCONTIN (NDA 22-272) [Suspect]
     Indication: PAIN
     Dosage: 15 MG, QID
     Route: 048
     Dates: start: 201109
  2. OXYCODONE HCL CR TABLETS (SIMILAR TO NDA 22-272) [Concomitant]
     Indication: BREAKTHROUGH PAIN
     Route: 048

REACTIONS (5)
  - Breakthrough pain [Unknown]
  - Drug ineffective [Unknown]
  - Diarrhoea [Unknown]
  - Chills [Unknown]
  - Constipation [Unknown]
